FAERS Safety Report 5019604-0 (Version None)
Quarter: 2006Q2

REPORT INFORMATION
  Report Type: 
  Country: None (occurrence: None)
  Receive Date: 20060601
  Receipt Date: 20060522
  Transmission Date: 20061013
  Serious: Yes (Congenital Anomaly)
  Sender: FDA-Public Use
  Company Number: 2006042229

PATIENT
  Sex: Male

DRUGS (3)
  1. DEPO-PROVERA [Suspect]
     Indication: CONTRACEPTION
     Dosage: 150 MG (50 MG, EVERY 12 WEEKS, MOST RECENT INJECTON)
     Dates: start: 20050505, end: 20050505
  2. ALCOHOL (ETHANOL) [Suspect]
     Indication: ALCOHOL USE
  3. ADVIL [Concomitant]

REACTIONS (5)
  - ALCOHOL USE [None]
  - CONGENITAL TONGUE ANOMALY [None]
  - DRUG EXPOSURE DURING PREGNANCY [None]
  - FEEDING DISORDER NEONATAL [None]
  - PREGNANCY WITH INJECTABLE CONTRACEPTIVE [None]
